FAERS Safety Report 6551637-5 (Version None)
Quarter: 2010Q1

REPORT INFORMATION
  Report Type: 
  Country: None (occurrence: None)
  Receive Date: 20100120
  Receipt Date: 20100107
  Transmission Date: 20100710
  Serious: Yes (Other)
  Sender: FDA-Public Use
  Company Number: 8047792

PATIENT
  Sex: Female
  Weight: 86.4 kg

DRUGS (5)
  1. CERTOLIZUMAB PEGOL (CERTOLIZUMAB PEGOL) [Suspect]
     Indication: RHEUMATOID ARTHRITIS
     Dosage: (400 MG 1X/2 WEEKS, - NR OF DOSES; 26 SUBCUTANEOUS), (200 MG, - NR OF DOSES: 43 SUBCUTANEOUS)
     Route: 058
     Dates: start: 20050825, end: 20060810
  2. CERTOLIZUMAB PEGOL (CERTOLIZUMAB PEGOL) [Suspect]
     Indication: RHEUMATOID ARTHRITIS
     Dosage: (400 MG 1X/2 WEEKS, - NR OF DOSES; 26 SUBCUTANEOUS), (200 MG, - NR OF DOSES: 43 SUBCUTANEOUS)
     Route: 058
     Dates: start: 20071227, end: 20090115
  3. PREDNISONE [Concomitant]
  4. DICLOFENAC [Concomitant]
  5. METHOTREXATE [Concomitant]

REACTIONS (1)
  - HISTOPLASMOSIS [None]
